FAERS Safety Report 15537041 (Version 2)
Quarter: 2018Q4

REPORT INFORMATION
  Report Type: Spontaneous
  Country: IT (occurrence: IT)
  Receive Date: 20181022
  Receipt Date: 20181024
  Transmission Date: 20190205
  Serious: Yes (Other)
  Sender: FDA-Public Use
  Company Number: IT-BRACCO-2018IT05340

PATIENT
  Age: 78 Year
  Sex: Male

DRUGS (3)
  1. ZIRTEC [Concomitant]
     Active Substance: CETIRIZINE HYDROCHLORIDE
     Indication: RASH PRURITIC
     Route: 048
  2. PROHANCE [Suspect]
     Active Substance: GADOTERIDOL
     Indication: NUCLEAR MAGNETIC RESONANCE IMAGING BRAIN
     Dosage: 0.2 ML, SINGLE
     Route: 042
     Dates: start: 20180927, end: 20180927
  3. RYTMONORM [Concomitant]
     Active Substance: PROPAFENONE
     Route: 048

REACTIONS (2)
  - Cardio-respiratory arrest [Recovered/Resolved]
  - Loss of consciousness [Recovered/Resolved]

NARRATIVE: CASE EVENT DATE: 20180927
